FAERS Safety Report 6698276-3 (Version None)
Quarter: 2010Q2

REPORT INFORMATION
  Report Type: 
  Country: None (occurrence: None)
  Receive Date: 20100427
  Receipt Date: 20100419
  Transmission Date: 20101027
  Serious: Yes (Hospitalization)
  Sender: FDA-Public Use
  Company Number: DE-ASTRAZENECA-2010SE17180

PATIENT
  Sex: Female

DRUGS (1)
  1. SCANDICAIN [Suspect]
     Indication: MOLE EXCISION
     Dosage: 2-3 ML OF SCANDICAIN 1 %

REACTIONS (3)
  - FEELING ABNORMAL [None]
  - HANGOVER [None]
  - SPEECH DISORDER [None]
